FAERS Safety Report 4603980-4 (Version None)
Quarter: 2005Q1

REPORT INFORMATION
  Report Type: 
  Country: None (occurrence: None)
  Receive Date: 20050308
  Receipt Date: 20050215
  Transmission Date: 20050727
  Serious: Yes (Death)
  Sender: FDA-Public Use
  Company Number: ENT 2005-0022

PATIENT
  Sex: Male

DRUGS (1)
  1. COMTAN [Suspect]
     Dosage: 4 B OXES/MONTH ORAL
     Route: 048

REACTIONS (1)
  - DEATH [None]
